FAERS Safety Report 5701031-1 (Version None)
Quarter: 2008Q2

REPORT INFORMATION
  Report Type: 
  Country: None (occurrence: None)
  Receive Date: 20080410
  Receipt Date: 20071017
  Transmission Date: 20081010
  Serious: Yes (Hospitalization)
  Sender: FDA-Public Use
  Company Number: BE-WYE-H00570207

PATIENT
  Age: 40 Year
  Sex: Male

DRUGS (1)
  1. PANTOZOL [Suspect]
     Indication: GASTROOESOPHAGEAL REFLUX DISEASE
     Dosage: 40 MG (FREQUENCY NOT SPECIFIED)
     Route: 048
     Dates: start: 20070411, end: 20070622

REACTIONS (1)
  - RENAL FAILURE ACUTE [None]
